FAERS Safety Report 19986290 (Version 3)
Quarter: 2022Q3

REPORT INFORMATION
  Report Type: Spontaneous
  Country: FR (occurrence: FR)
  Receive Date: 20211022
  Receipt Date: 20220810
  Transmission Date: 20221027
  Serious: Yes (Hospitalization, Other)
  Sender: FDA-Public Use
  Company Number: None

PATIENT
  Age: 63 Year
  Sex: Male
  Weight: 100 kg

DRUGS (5)
  1. LOVENOX [Suspect]
     Active Substance: ENOXAPARIN SODIUM
     Indication: Product used for unknown indication
     Dosage: 2000 IU, QD
     Route: 058
     Dates: start: 20210627, end: 20210627
  2. ACYCLOVIR [Suspect]
     Active Substance: ACYCLOVIR
     Indication: Guillain-Barre syndrome
     Dosage: 960 MG, Q8H
     Route: 042
     Dates: start: 20210627, end: 20210627
  3. TRAMADOL HYDROCHLORIDE [Suspect]
     Active Substance: TRAMADOL HYDROCHLORIDE
     Indication: Guillain-Barre syndrome
     Dosage: 150 MG, QD
     Route: 048
     Dates: start: 20210627, end: 20210628
  4. INTRATECT [Suspect]
     Active Substance: HUMAN IMMUNOGLOBULIN G
     Indication: Guillain-Barre syndrome
     Dosage: 40 G, QD
     Route: 042
     Dates: start: 20210627, end: 20210628
  5. COVID-19 VACCINE NOS [Suspect]
     Active Substance: COVID-19 VACCINE NOS
     Indication: COVID-19 immunisation
     Dosage: 1 DF, 1X
     Route: 030
     Dates: start: 20210506

REACTIONS (2)
  - Tubulointerstitial nephritis [Recovered/Resolved]
  - Nephrotic syndrome [Recovered/Resolved]
